FAERS Safety Report 15723251 (Version 1)
Quarter: 2018Q4

REPORT INFORMATION
  Report Type: Spontaneous
  Country: JP (occurrence: JP)
  Receive Date: 20181214
  Receipt Date: 20181214
  Transmission Date: 20190205
  Serious: Yes (Other)
  Sender: FDA-Public Use
  Company Number: JP-BAYER-2018-228380

PATIENT
  Age: 3 Decade
  Sex: Female

DRUGS (1)
  1. ADEMPAS [Suspect]
     Active Substance: RIOCIGUAT
     Dosage: DAILY DOSE 7.5 MG
     Route: 048
     Dates: start: 20160201, end: 20170601

REACTIONS (4)
  - Abdominal pain [None]
  - Hyperthyroidism [None]
  - Headache [None]
  - Nausea [None]

NARRATIVE: CASE EVENT DATE: 20160601
